FAERS Safety Report 4755845-5 (Version None)
Quarter: 2005Q3

REPORT INFORMATION
  Report Type: 
  Country: None (occurrence: None)
  Receive Date: 20050830
  Receipt Date: 20050516
  Transmission Date: 20060218
  Serious: No
  Sender: FDA-Public Use
  Company Number: US-BRISTOL-MYERS SQUIBB COMPANY-12969622

PATIENT
  Age: 74 Year
  Sex: Male
  Weight: 88 kg

DRUGS (5)
  1. ERBITUX [Suspect]
     Indication: COLORECTAL CANCER
     Dosage: 1ST DOSE 800 MG. 2ND, 3RD AND 4TH DOSE = 500 MG.
     Dates: start: 20050401, end: 20050401
  2. CAMPTOSAR [Concomitant]
  3. BENADRYL [Concomitant]
     Indication: PREMEDICATION
     Route: 042
     Dates: start: 20050401, end: 20050401
  4. NEULASTA [Concomitant]
  5. PRILOSEC [Concomitant]

REACTIONS (1)
  - DERMATITIS ACNEIFORM [None]
